FAERS Safety Report 8967174 (Version 1)
Quarter: 2012Q4

REPORT INFORMATION
  Report Type: 
  Country: FR (occurrence: FR)
  Receive Date: 20121217
  Receipt Date: 20121217
  Transmission Date: 20130627
  Serious: Yes (Death, Other)
  Sender: FDA-Public Use
  Company Number: FR-JNJFOC-20121204428

PATIENT
  Age: 62 Year
  Sex: Male

DRUGS (13)
  1. DOXORUBICIN [Suspect]
     Indication: HODGKIN^S DISEASE
     Route: 042
  2. BLEOMYCIN [Suspect]
     Indication: HODGKIN^S DISEASE
     Route: 065
  3. ETOPOSIDE [Suspect]
     Indication: HODGKIN^S DISEASE
     Dosage: under both BEACOPP regimen and ICE regimen
     Route: 065
  4. CYCLOPHOSPHAMIDE [Suspect]
     Indication: HODGKIN^S DISEASE
     Route: 065
  5. VINBLASTINE [Suspect]
     Indication: HODGKIN^S DISEASE
     Route: 065
  6. PROCARBAZINE [Suspect]
     Indication: HODGKIN^S DISEASE
     Route: 065
  7. PREDNISONE [Suspect]
     Indication: HODGKIN^S DISEASE
     Route: 065
  8. DEXAMETHASONE [Suspect]
     Indication: HODGKIN^S DISEASE
     Route: 065
  9. CYTARABINE [Suspect]
     Indication: HODGKIN^S DISEASE
     Route: 065
  10. OXALIPLATIN [Suspect]
     Indication: HODGKIN^S DISEASE
     Route: 065
  11. IFOSFAMIDE [Suspect]
     Indication: HODGKIN^S DISEASE
     Route: 065
  12. CARBOPLATIN [Suspect]
     Indication: HODGKIN^S DISEASE
     Route: 065
  13. ETOPOSIDE [Suspect]
     Indication: HODGKIN^S DISEASE
     Route: 065

REACTIONS (2)
  - Death [Fatal]
  - Hodgkin^s disease recurrent [Unknown]
